FAERS Safety Report 8603942 (Version 2)
Quarter: 2013Q3

REPORT INFORMATION
  Report Type: Spontaneous
  Country: US (occurrence: US)
  Receive Date: 20120608
  Receipt Date: 20130708
  Transmission Date: 20140515
  Serious: No
  Sender: FDA-Public Use
  Company Number: US-ASTRAZENECA-2012SE34949

PATIENT
  Age: 33 Year
  Sex: Female

DRUGS (13)
  1. NEXIUM [Suspect]
     Route: 048
     Dates: start: 1999
  2. NEXIUM [Suspect]
     Route: 048
     Dates: start: 1999
  3. PRILOSEC [Suspect]
     Route: 048
  4. PROTONIX [Concomitant]
     Route: 048
  5. PREVACID [Concomitant]
     Route: 048
  6. ZANTAC [Concomitant]
  7. ZEGERID [Concomitant]
  8. CELLCEPT [Concomitant]
  9. PROGRAFF [Concomitant]
  10. PREDNISONE [Concomitant]
  11. AMIODARONE [Concomitant]
  12. LOPRESOR [Concomitant]
  13. DIAZEPAM [Concomitant]

REACTIONS (10)
  - Osteoporosis [Unknown]
  - Wrist fracture [Unknown]
  - Angina pectoris [Unknown]
  - Anxiety [Unknown]
  - Arthritis [Unknown]
  - Calcinosis [Unknown]
  - Cough [Unknown]
  - Foot fracture [Unknown]
  - Pneumonia [Unknown]
  - Rib fracture [Unknown]
